FAERS Safety Report 18441659 (Version 1)
Quarter: 2020Q4

REPORT INFORMATION
  Report Type: Spontaneous
  Country: FR (occurrence: FR)
  Receive Date: 20201029
  Receipt Date: 20201029
  Transmission Date: 20210114
  Serious: Yes (Hospitalization, Other)
  Sender: FDA-Public Use
  Company Number: FR-MYLANLABS-2020M1089974

PATIENT
  Age: 26 Year
  Sex: Female

DRUGS (2)
  1. PREGABALIN. [Suspect]
     Active Substance: PREGABALIN
     Indication: PRODUCT USED FOR UNKNOWN INDICATION
     Dosage: UNK
     Route: 048
     Dates: start: 20200925, end: 20200925
  2. IBUPROFEN. [Suspect]
     Active Substance: IBUPROFEN
     Indication: PRODUCT USED FOR UNKNOWN INDICATION
     Dosage: 4800 MILLIGRAM
     Route: 048
     Dates: start: 20200925, end: 20200925

REACTIONS (4)
  - Toxicity to various agents [Unknown]
  - Headache [Recovered/Resolved]
  - Somnolence [Recovered/Resolved]
  - Abdominal pain upper [Recovered/Resolved]

NARRATIVE: CASE EVENT DATE: 20200925
